FAERS Safety Report 9302645 (Version 1)
Quarter: 2013Q2

REPORT INFORMATION
  Report Type: Spontaneous
  Country: US (occurrence: None)
  Receive Date: 20130517
  Receipt Date: 20130517
  Transmission Date: 20140414
  Serious: Yes (Hospitalization)
  Sender: FDA-Public Use
  Company Number: 2013-0232

PATIENT
  Age: 62 Year
  Sex: Male

DRUGS (5)
  1. KYPROLIS (CARFILZOMIB)(INJECTION FOR INFUSION)(CARFILZOMIB) [Suspect]
     Indication: PLASMA CELL MYELOMA
     Dosage: (2 IN 1WK)
     Route: 042
     Dates: start: 2012
  2. MS CONTIN (MORPHINE SULFATE)(MORPHINE SULFATE) [Concomitant]
  3. VALTREX (VALACICLOVIR HYDROCHLORIDE)(VALACICLOVIR HYDROCHLORIDE) [Concomitant]
  4. COUMADIN (WARFARIN SODIUM)(WARFARIN SODIUM) [Concomitant]
  5. GABAPENTIN (GABAPENTIN)(GABAPENTIN) [Concomitant]

REACTIONS (7)
  - Headache [None]
  - Thrombosis [None]
  - Nephrolithiasis [None]
  - Neuropathy peripheral [None]
  - Appendicitis [None]
  - Neoplasm malignant [None]
  - Abdominal discomfort [None]
